FAERS Safety Report 6648000-5 (Version None)
Quarter: 2010Q1

REPORT INFORMATION
  Report Type: 
  Country: None (occurrence: None)
  Receive Date: 20100319
  Receipt Date: 20100308
  Transmission Date: 20100710
  Serious: Yes (Hospitalization, Other)
  Sender: FDA-Public Use
  Company Number: 234466J08USA

PATIENT
  Age: 38 Year
  Sex: Female
  Weight: 91 kg

DRUGS (7)
  1. REBIF [Suspect]
     Indication: MULTIPLE SCLEROSIS
     Dosage: 44 MCG, 3 IN 1 WEEKS, SUBCUTANEOUS
     Route: 058
     Dates: start: 20070629
  2. LOPRESSOR [Concomitant]
  3. ZESTRIL [Concomitant]
  4. LEVOTHYROXINE SODIUM [Concomitant]
  5. EFFEXOR [Concomitant]
  6. NEURONTIN [Concomitant]
  7. PREDNISONE TAB [Concomitant]

REACTIONS (16)
  - BLADDER INJURY [None]
  - CARDIAC FAILURE CONGESTIVE [None]
  - CONDITION AGGRAVATED [None]
  - HEAD INJURY [None]
  - HEART VALVE INCOMPETENCE [None]
  - IATROGENIC INJURY [None]
  - LOSS OF CONSCIOUSNESS [None]
  - MITRAL VALVE INCOMPETENCE [None]
  - MULTIPLE SCLEROSIS [None]
  - OVARIAN CYST [None]
  - PAIN IN EXTREMITY [None]
  - PNEUMONIA [None]
  - PULMONARY EMBOLISM [None]
  - PULMONARY HYPERTENSION [None]
  - TACHYCARDIA [None]
  - TREATMENT NONCOMPLIANCE [None]
